FAERS Safety Report 6566896-2 (Version None)
Quarter: 2010Q1

REPORT INFORMATION
  Report Type: 
  Country: None (occurrence: None)
  Receive Date: 20100128
  Receipt Date: 20100114
  Transmission Date: 20100710
  Serious: Yes (Hospitalization)
  Sender: FDA-Public Use
  Company Number: A-US2009-26937

PATIENT
  Age: 64 Year
  Sex: Male

DRUGS (4)
  1. TRACLEER [Suspect]
     Indication: PULMONARY ARTERIAL HYPERTENSION
     Dosage: ORAL
     Route: 048
     Dates: start: 20090523, end: 20090811
  2. PLAVIX [Concomitant]
  3. OXYGEN (OXYGEN) [Concomitant]
  4. THEOPHYLLINE [Concomitant]

REACTIONS (5)
  - ANAEMIA [None]
  - ASTHENIA [None]
  - NO THERAPEUTIC RESPONSE [None]
  - OFF LABEL USE [None]
  - RESPIRATORY FAILURE [None]
